FAERS Safety Report 7334781-4 (Version None)
Quarter: 2011Q1

REPORT INFORMATION
  Report Type: 
  Country: None (occurrence: None)
  Receive Date: 20110223
  Receipt Date: 20110210
  Transmission Date: 20110831
  Serious: Yes (Hospitalization)
  Sender: FDA-Public Use
  Company Number: THQ2011A00594

PATIENT
  Age: 65 Year
  Sex: Male

DRUGS (5)
  1. ACTOS [Suspect]
     Indication: TYPE 2 DIABETES MELLITUS
     Dosage: 30 MG
     Route: 048
     Dates: start: 20070501, end: 20110201
  2. AMAREL 3 MG (GLIMEPIRIDE) [Concomitant]
  3. GLUCOPHAGE [Concomitant]
  4. AMLOR 5 (AMLODIPINE BESILATE) [Concomitant]
  5. APROVEL 300 MG (IRBESARTAN) [Concomitant]

REACTIONS (2)
  - HAEMATURIA [None]
  - BLADDER TRANSITIONAL CELL CARCINOMA [None]
